FAERS Safety Report 5165575-6 (Version None)
Quarter: 2006Q4

REPORT INFORMATION
  Report Type: 
  Country: None (occurrence: None)
  Receive Date: 20061206
  Receipt Date: 20001222
  Transmission Date: 20070319
  Serious: Yes (Hospitalization)
  Sender: FDA-Public Use
  Company Number: FR-GLAXOSMITHKLINE-B0095008A

PATIENT
  Sex: Female
  Weight: 3.4 kg

DRUGS (7)
  1. RETROVIR [Suspect]
     Indication: ANTIVIRAL PROPHYLAXIS
     Route: 048
     Dates: start: 19971206
  2. LAMIVUDINE [Suspect]
     Indication: ANTIVIRAL PROPHYLAXIS
     Route: 048
     Dates: start: 19971206
  3. ZIDOVUDINE [Suspect]
     Indication: HIV INFECTION
     Route: 048
  4. LAMIVUDINE [Suspect]
     Indication: HIV INFECTION
     Route: 048
  5. ZIDOVUDINE [Suspect]
     Route: 042
     Dates: start: 19971206, end: 19971206
  6. IRON [Concomitant]
  7. GYNOMYK [Concomitant]
     Route: 067

REACTIONS (6)
  - ANAEMIA [None]
  - BLOOD LACTIC ACID INCREASED [None]
  - HYPOTONIA [None]
  - MICROCYTOSIS [None]
  - NEUTROPENIA [None]
  - ORAL FUNGAL INFECTION [None]
